FAERS Safety Report 4960785-2 (Version None)
Quarter: 2006Q2

REPORT INFORMATION
  Report Type: 
  Country: None (occurrence: None)
  Receive Date: 20060403
  Receipt Date: 20051006
  Transmission Date: 20061013
  Serious: Yes (Hospitalization, Other)
  Sender: FDA-Public Use
  Company Number: US-MERCK-0510USA05541

PATIENT
  Age: 81 Year
  Sex: Male
  Weight: 90 kg

DRUGS (3)
  1. VIOXX [Suspect]
     Indication: OSTEOARTHRITIS
     Route: 048
     Dates: start: 20001001
  2. VIOXX [Suspect]
     Route: 048
     Dates: start: 20030101, end: 20030301
  3. VIOXX [Suspect]
     Route: 048
     Dates: start: 20030301, end: 20040823

REACTIONS (21)
  - ANAEMIA [None]
  - ARTERIOSCLEROSIS [None]
  - BENIGN PROSTATIC HYPERPLASIA [None]
  - CATARACT [None]
  - CEREBRAL INFARCTION [None]
  - CEREBROVASCULAR ACCIDENT [None]
  - COLONIC POLYP [None]
  - DIABETES MELLITUS [None]
  - DIVERTICULUM [None]
  - ESSENTIAL HYPERTENSION [None]
  - HYPERCALCAEMIA [None]
  - HYPERPARATHYROIDISM PRIMARY [None]
  - HYPERTENSION [None]
  - HYPERTENSIVE NEPHROPATHY [None]
  - NEUROPATHY PERIPHERAL [None]
  - PARTIAL SEIZURES [None]
  - RECTAL POLYP [None]
  - RENAL FAILURE CHRONIC [None]
  - SLEEP APNOEA SYNDROME [None]
  - THROMBOTIC STROKE [None]
  - VENTRICULAR HYPERTROPHY [None]
